FAERS Safety Report 8363123-0 (Version None)
Quarter: 2012Q1

REPORT INFORMATION
  Report Type: 
  Country: None (occurrence: None)
  Receive Date: 20120323
  Receipt Date: 20110516
  Transmission Date: 20120608
  Serious: Yes (Other)
  Sender: FDA-Public Use
  Company Number: 163-21880-11052108

PATIENT
  Age: 85 Year
  Sex: Female

DRUGS (7)
  1. DEXAMETHASONE [Concomitant]
  2. ASPIRIN LOW (ACETYLSALICYLIC ACID) [Concomitant]
  3. OSCAL D-3 (CALCITE D) [Concomitant]
  4. ACYCLOVIR [Concomitant]
  5. REVLIMID [Suspect]
     Indication: MULTIPLE MYELOMA
     Dosage: 15 MG, 1 IN 1 D, PO, 20 MG, 2 IN 1 D, PO, 10 MG, DAILY, PO
     Route: 048
     Dates: start: 20110401, end: 20110501
  6. REVLIMID [Suspect]
     Indication: MULTIPLE MYELOMA
     Dosage: 15 MG, 1 IN 1 D, PO, 20 MG, 2 IN 1 D, PO, 10 MG, DAILY, PO
     Route: 048
     Dates: start: 20110501
  7. REVLIMID [Suspect]
     Indication: MULTIPLE MYELOMA
     Dosage: 15 MG, 1 IN 1 D, PO, 20 MG, 2 IN 1 D, PO, 10 MG, DAILY, PO
     Route: 048
     Dates: start: 20110318, end: 20110401

REACTIONS (2)
  - FALL [None]
  - SPINAL FRACTURE [None]
